FAERS Safety Report 4977745-8 (Version None)
Quarter: 2006Q2

REPORT INFORMATION
  Report Type: 
  Country: None (occurrence: None)
  Receive Date: 20060420
  Receipt Date: 20060310
  Transmission Date: 20061013
  Serious: Yes (Hospitalization)
  Sender: FDA-Public Use
  Company Number: CHWYE462813MAR06

PATIENT
  Age: 56 Year
  Sex: Female
  Weight: 130 kg

DRUGS (13)
  1. ENBREL [Suspect]
     Indication: RHEUMATOID ARTHRITIS
     Route: 058
     Dates: start: 20060109, end: 20060124
  2. SPIRICORT [Suspect]
  3. SALAZOPYRIN [Concomitant]
     Route: 048
     Dates: start: 20030501
  4. PLAQUENIL [Concomitant]
     Route: 048
     Dates: start: 20030501
  5. LODINE [Concomitant]
     Route: 048
  6. DILTIAZEM HCL [Concomitant]
  7. TORSEMIDE [Concomitant]
  8. FOLVITE [Concomitant]
  9. GLUCOPHAGE [Concomitant]
  10. INSULATARD NPH HUMAN [Concomitant]
     Dosage: 40 IU AND 20 IU PER DAY
  11. COLECALCIFEROL [Concomitant]
  12. CALCIUM GLUCONATE [Concomitant]
  13. METHOTREXATE [Concomitant]
     Route: 058
     Dates: start: 20021001, end: 20051201

REACTIONS (13)
  - AGITATION [None]
  - ARTHRALGIA [None]
  - BLOOD GLUCOSE INCREASED [None]
  - BLOOD POTASSIUM DECREASED [None]
  - BLOOD PRESSURE INCREASED [None]
  - C-REACTIVE PROTEIN INCREASED [None]
  - CHEST PAIN [None]
  - HEART RATE INCREASED [None]
  - JOINT SWELLING [None]
  - PHARYNGEAL OEDEMA [None]
  - PROTHROMBIN TIME PROLONGED [None]
  - RESTLESSNESS [None]
  - TREMOR [None]
